FAERS Safety Report 6111045-8 (Version None)
Quarter: 2009Q1

REPORT INFORMATION
  Report Type: 
  Country: None (occurrence: None)
  Receive Date: 20090311
  Receipt Date: 20090303
  Transmission Date: 20090719
  Serious: Yes (Hospitalization, Other)
  Sender: FDA-Public Use
  Company Number: PHHO2009AU02977

PATIENT
  Sex: Male
  Weight: 93.35 kg

DRUGS (2)
  1. ERL 080A ERL+TAB [Suspect]
     Indication: RENAL TRANSPLANT
     Dosage: 1400 MG DAILY
     Route: 048
     Dates: start: 20070315
  2. WARFARIN SODIUM [Concomitant]
     Indication: DEEP VEIN THROMBOSIS
     Dosage: UNK

REACTIONS (3)
  - BACTERIAL INFECTION [None]
  - CELLULITIS [None]
  - DEEP VEIN THROMBOSIS [None]
